FAERS Safety Report 8775275 (Version 2)
Quarter: 2012Q4

REPORT INFORMATION
  Report Type: 
  Country: JP (occurrence: JP)
  Receive Date: 20120909
  Receipt Date: 20120918
  Transmission Date: 20130627
  Serious: No
  Sender: FDA-Public Use
  Company Number: JP-AMGEN-JPNSP2012056263

PATIENT
  Age: 68 Year
  Sex: Male

DRUGS (9)
  1. RANMARK [Suspect]
     Indication: PROSTATE CANCER
     Dosage: 120 mg, qd
     Route: 058
     Dates: start: 20120710, end: 20120710
  2. LEUPLIN [Concomitant]
     Indication: PROSTATE CANCER
     Route: 058
     Dates: start: 200808
  3. DECADRON [Concomitant]
     Indication: PROSTATE CANCER
     Route: 048
     Dates: start: 20101204
  4. ESTRACYT [Concomitant]
     Indication: PROSTATE CANCER
     Route: 048
     Dates: start: 20110119
  5. GASMET D [Concomitant]
     Indication: GASTRIC ULCER
     Route: 048
     Dates: start: 20081006
  6. ROZEREM [Concomitant]
     Indication: INSOMNIA
     Route: 048
     Dates: start: 20120507
  7. NIFEDIPINE CR [Concomitant]
     Indication: HYPERTENSION
     Route: 048
     Dates: start: 20120626
  8. ENSURE LIQUID [Concomitant]
     Indication: MEDICAL DIET
     Route: 048
     Dates: start: 20110908
  9. ZOMETA [Concomitant]
     Indication: METASTASES TO BONE
     Route: 041
     Dates: start: 20101108, end: 20120619

REACTIONS (5)
  - Eye movement disorder [Recovered/Resolved]
  - Nystagmus [Recovered/Resolved]
  - Lip disorder [Recovered/Resolved]
  - Tetany [Recovered/Resolved]
  - Blood calcium decreased [Recovered/Resolved]
